FAERS Safety Report 6521372-8 (Version None)
Quarter: 2009Q4

REPORT INFORMATION
  Report Type: 
  Country: None (occurrence: None)
  Receive Date: 20091230
  Receipt Date: 20091221
  Transmission Date: 20100525
  Serious: Yes (Other)
  Sender: FDA-Public Use
  Company Number: JP-ASTRAZENECA-2009SE33549

PATIENT
  Age: 25 Year
  Sex: Female

DRUGS (3)
  1. SEROQUEL [Suspect]
     Route: 048
  2. SEROQUEL [Suspect]
     Route: 048
  3. DEPAKENE [Concomitant]
     Route: 048

REACTIONS (2)
  - DISSOCIATIVE DISORDER [None]
  - PANIC REACTION [None]
